FAERS Safety Report 19561729 (Version 1)
Quarter: 2021Q3

REPORT INFORMATION
  Report Type: Spontaneous
  Country: US (occurrence: US)
  Receive Date: 20210715
  Receipt Date: 20210715
  Transmission Date: 20211014
  Serious: No
  Sender: FDA-Public Use
  Company Number: US-PFIZER INC-2018357517

PATIENT
  Age: 49 Year
  Sex: Male
  Weight: 140 kg

DRUGS (21)
  1. HYDROCODONE [Concomitant]
     Active Substance: HYDROCODONE
     Indication: INTERVERTEBRAL DISC PROTRUSION
     Dosage: 10 MG, 2X/DAY
     Dates: start: 2004
  2. LYRICA [Suspect]
     Active Substance: PREGABALIN
     Dosage: UNK (225 MG CAPSULE QTY 90 DAYS 30)
     Dates: start: 20190717
  3. LYRICA [Suspect]
     Active Substance: PREGABALIN
     Dosage: 225 MG CAPSULE QTY 90 DAYS 30
     Dates: start: 20191230
  4. LYRICA [Suspect]
     Active Substance: PREGABALIN
     Dosage: UNK (225 MG CAPSULE QTY 90 DAYS 30)
     Dates: start: 20190624
  5. LYRICA [Suspect]
     Active Substance: PREGABALIN
     Dosage: UNK (225 MG CAPSULE QTY 90 DAYS 30)
     Dates: start: 20190814
  6. LYRICA [Suspect]
     Active Substance: PREGABALIN
     Dosage: UNK (225 MG CAPSULE QTY 90 DAYS 30)
     Dates: start: 20190911
  7. LYRICA [Suspect]
     Active Substance: PREGABALIN
     Indication: TYPE 2 DIABETES MELLITUS
     Dosage: UNK (225 MG CAPSULE QTY 90 DAYS 30)
     Dates: start: 20190214
  8. LYRICA [Suspect]
     Active Substance: PREGABALIN
     Dosage: UNK (225 MG CAPSULE QTY 90 DAYS 30)
     Dates: start: 20190404
  9. LYRICA [Suspect]
     Active Substance: PREGABALIN
     Dosage: UNK (225 MG CAPSULE QTY 90 DAYS 30)
     Dates: start: 20190503
  10. LYRICA [Suspect]
     Active Substance: PREGABALIN
     Dosage: 225 MG CAPSULE QTY 90 DAYS 30
     Dates: start: 20191118
  11. LYRICA [Suspect]
     Active Substance: PREGABALIN
     Dosage: 225 MG, 3X/DAY, (TAKE 1 CAPSULE 3 TIMES DAILY)
     Route: 048
     Dates: start: 2009
  12. LYRICA [Suspect]
     Active Substance: PREGABALIN
     Indication: DIABETIC NEUROPATHY
     Dosage: 225 MG, THREE TIMES A DAY (1 CAPSULE 3 TIMES DAILY)
     Route: 048
  13. LYRICA [Suspect]
     Active Substance: PREGABALIN
     Dosage: UNK (225 MG CAPSULE QTY 90 DAYS 30)
     Dates: start: 20190312
  14. LYRICA [Suspect]
     Active Substance: PREGABALIN
     Dosage: UNK (225 MG CAPSULE QTY 90 DAYS 30)
     Dates: start: 20190507
  15. LYRICA [Suspect]
     Active Substance: PREGABALIN
     Dosage: UNK (225 MG CAPSULE QTY 90 DAYS 30)
     Dates: start: 20190531
  16. LYRICA [Suspect]
     Active Substance: PREGABALIN
     Dosage: 225 MG CAPSULE QTY 90 DAYS 30
     Dates: start: 20191209
  17. LYRICA [Suspect]
     Active Substance: PREGABALIN
     Dosage: 225 MG CAPSULE QTY 90 DAYS 30
     Dates: start: 20200106
  18. HYDROCODONE [Concomitant]
     Active Substance: HYDROCODONE
     Indication: FOOT OPERATION
  19. LYRICA [Suspect]
     Active Substance: PREGABALIN
     Dosage: (300 MG CAPSULE QTY 90 DAYS 30)
     Dates: start: 20190927
  20. LYRICA [Suspect]
     Active Substance: PREGABALIN
     Dosage: 225 MG CAPSULE QTY 90 DAYS 30
     Dates: start: 20191029
  21. LYRICA [Suspect]
     Active Substance: PREGABALIN
     Dosage: 225 MG CAPSULE QTY 90 DAYS 30
     Dates: start: 20191007

REACTIONS (3)
  - Prescribed overdose [Unknown]
  - Gait inability [Unknown]
  - Product prescribing error [Unknown]

NARRATIVE: CASE EVENT DATE: 2009
